FAERS Safety Report 16045146 (Version 1)
Quarter: 2019Q1

REPORT INFORMATION
  Report Type: Spontaneous
  Country: US (occurrence: US)
  Receive Date: 20190307
  Receipt Date: 20190307
  Transmission Date: 20190418
  Serious: No
  Sender: FDA-Public Use
  Company Number: US-GLENMARK PHARMACEUTICALS-2019GMK039240

PATIENT

DRUGS (1)
  1. OXCARBAZEPINE. [Suspect]
     Active Substance: OXCARBAZEPINE
     Indication: NEURALGIA
     Dosage: UNK
     Route: 065

REACTIONS (5)
  - Throat irritation [Unknown]
  - Pain [Unknown]
  - Product use in unapproved indication [Unknown]
  - Product shape issue [Unknown]
  - Migraine [Unknown]
